FAERS Safety Report 7800085-6 (Version None)
Quarter: 2011Q4

REPORT INFORMATION
  Report Type: 
  Country: None (occurrence: None)
  Receive Date: 20111006
  Receipt Date: 20110927
  Transmission Date: 20120403
  Serious: Yes (Hospitalization)
  Sender: FDA-Public Use
  Company Number: BR-ASTRAZENECA-2011SE55335

PATIENT
  Age: 60 Year
  Sex: Male
  Weight: 84.3 kg

DRUGS (4)
  1. METOPROLOL SUCCINATE [Suspect]
     Route: 048
     Dates: start: 20090101
  2. ATACAND HCT [Suspect]
     Indication: HYPERTENSION
     Dosage: 16 MG / 5MG
     Route: 048
     Dates: start: 20090101, end: 20110804
  3. ATACAND [Suspect]
     Indication: HYPERTENSION
     Route: 048
     Dates: start: 20090101, end: 20090101
  4. ATACAND [Suspect]
     Route: 048
     Dates: start: 20110805

REACTIONS (5)
  - AORTIC DILATATION [None]
  - OEDEMA PERIPHERAL [None]
  - TACHYCARDIA [None]
  - STRESS [None]
  - WEIGHT DECREASED [None]
